FAERS Safety Report 7972014-6 (Version None)
Quarter: 2011Q4

REPORT INFORMATION
  Report Type: 
  Country: None (occurrence: None)
  Receive Date: 20111212
  Receipt Date: 20111207
  Transmission Date: 20120403
  Serious: Yes (Life-Threatening)
  Sender: FDA-Public Use
  Company Number: CN-ASTRAZENECA-2011SE74035

PATIENT

DRUGS (3)
  1. REMIFENTANIL [Suspect]
     Indication: INDUCTION AND MAINTENANCE OF ANAESTHESIA
     Dosage: 0.75 UG/KG/MIN
     Route: 042
  2. PROPOFOL [Suspect]
     Indication: INDUCTION AND MAINTENANCE OF ANAESTHESIA
     Route: 042
  3. PROPOFOL [Suspect]
     Dosage: 3-5 MG/KG/H
     Route: 042

REACTIONS (1)
  - RESPIRATORY ARREST [None]
